FAERS Safety Report 22126531 (Version 1)
Quarter: 2023Q1

REPORT INFORMATION
  Report Type: Spontaneous
  Country: US (occurrence: US)
  Receive Date: 20230322
  Receipt Date: 20230322
  Transmission Date: 20230418
  Serious: No
  Sender: FDA-Public Use
  Company Number: US-ALLERGAN-2304616US

PATIENT
  Sex: Female

DRUGS (3)
  1. URSO 250 [Suspect]
     Active Substance: URSODIOL
     Indication: Product used for unknown indication
  2. OCALIVA [Suspect]
     Active Substance: OBETICHOLIC ACID
     Indication: Primary biliary cholangitis
     Dosage: 5 MG, QD
     Route: 048
     Dates: start: 20220822
  3. CANNABIS SATIVA SUBSP. INDICA TOP [Suspect]
     Active Substance: CANNABIS SATIVA SUBSP. INDICA TOP
     Indication: Product used for unknown indication

REACTIONS (8)
  - Rib fracture [Unknown]
  - Impaired gastric emptying [Recovering/Resolving]
  - Gastrointestinal disorder [Unknown]
  - Night sweats [Not Recovered/Not Resolved]
  - Vomiting [Recovering/Resolving]
  - Blood alkaline phosphatase increased [Not Recovered/Not Resolved]
  - Pruritus [Recovering/Resolving]
  - Abdominal pain [Recovering/Resolving]
